FAERS Safety Report 10305823 (Version 1)
Quarter: 2014Q3

REPORT INFORMATION
  Report Type: Spontaneous
  Country: US (occurrence: None)
  Receive Date: 20140711
  Receipt Date: 20140711
  Transmission Date: 20150326
  Serious: Yes (Hospitalization, Other)
  Sender: FDA-Public Use
  Company Number: FK201402686

PATIENT
  Age: 39 Year
  Sex: Female

DRUGS (1)
  1. PROGESTERONE. [Suspect]
     Active Substance: PROGESTERONE
     Indication: IN VITRO FERTILISATION
     Route: 030

REACTIONS (4)
  - Ejection fraction decreased [None]
  - Treatment failure [None]
  - Eosinophilic pneumonia [None]
  - Dizziness [None]
